FAERS Safety Report 11504815 (Version 1)
Quarter: 2015Q3

REPORT INFORMATION
  Report Type: Spontaneous
  Country: US (occurrence: US)
  Receive Date: 20150915
  Receipt Date: 20150915
  Transmission Date: 20151125
  Serious: No
  Sender: FDA-Public Use
  Company Number: US-ROCHE-779660

PATIENT
  Age: 52 Year
  Sex: Male
  Weight: 102.1 kg

DRUGS (2)
  1. PEGASYS [Suspect]
     Active Substance: PEGINTERFERON ALFA-2A
     Indication: HEPATITIS C
     Route: 058
  2. COPEGUS [Suspect]
     Active Substance: RIBAVIRIN
     Indication: HEPATITIS C
     Route: 065

REACTIONS (7)
  - Injection site haemorrhage [Unknown]
  - Pyrexia [Unknown]
  - Rash [Not Recovered/Not Resolved]
  - Mood altered [Unknown]
  - Injection site bruising [Unknown]
  - Fatigue [Unknown]
  - Rash macular [Not Recovered/Not Resolved]

NARRATIVE: CASE EVENT DATE: 20110218
